FAERS Safety Report 11073997 (Version 8)
Quarter: 2016Q3

REPORT INFORMATION
  Report Type: Spontaneous
  Country: CA (occurrence: CA)
  Receive Date: 20150429
  Receipt Date: 20160916
  Transmission Date: 20161109
  Serious: Yes (Hospitalization, Other)
  Sender: FDA-Public Use
  Company Number: CA-ROCHE-1570298

PATIENT
  Age: 58 Year
  Sex: Male

DRUGS (7)
  1. SEEBRI [Suspect]
     Active Substance: GLYCOPYRRONIUM
     Indication: ASTHMA
     Dosage: 1 PUFF
     Route: 055
     Dates: start: 20151210, end: 20160825
  2. METOPROLOL. [Suspect]
     Active Substance: METOPROLOL
     Indication: HEART RATE IRREGULAR
     Route: 048
     Dates: start: 201501
  3. ADVAIR HFA [Concomitant]
     Active Substance: FLUTICASONE PROPIONATE\SALMETEROL XINAFOATE
     Dosage: 50/500 UG
     Route: 065
  4. OXEZE [Concomitant]
  5. XOLAIR [Suspect]
     Active Substance: OMALIZUMAB
     Indication: ASTHMA
     Route: 058
     Dates: start: 20150218, end: 20150326
  6. METOPROLOL. [Suspect]
     Active Substance: METOPROLOL
     Dosage: HALF TABLET TWICE DAILY
     Route: 048
     Dates: start: 201509
  7. PREDNISONE. [Concomitant]
     Active Substance: PREDNISONE

REACTIONS (10)
  - Appendicitis [Unknown]
  - Heart rate irregular [Unknown]
  - Product use issue [Unknown]
  - Body temperature increased [Unknown]
  - Lung hyperinflation [Unknown]
  - Obstructive airways disorder [Unknown]
  - Feeling abnormal [Unknown]
  - Blood immunoglobulin E increased [Unknown]
  - Myocardial infarction [Recovering/Resolving]
  - Pericarditis [Unknown]

NARRATIVE: CASE EVENT DATE: 20150126
